FAERS Safety Report 21867996 (Version 6)
Quarter: 2023Q1

REPORT INFORMATION
  Report Type: Spontaneous
  Country: GB (occurrence: CN)
  Receive Date: 20230116
  Receipt Date: 20230323
  Transmission Date: 20230418
  Serious: Yes (Other)
  Sender: FDA-Public Use
  Company Number: None

PATIENT
  Sex: Female

DRUGS (4)
  1. FLUOROMETHOLONE [Suspect]
     Active Substance: FLUOROMETHOLONE
     Indication: Eye inflammation
     Dosage: UNK
  2. HUMAN PAPILLOMAVIRUS VACCINE [Suspect]
     Active Substance: HUMAN PAPILLOMAVIRUS VACCINE
     Indication: Prophylaxis
     Dosage: THIRD DOSE
     Dates: start: 20221208, end: 20221208
  3. HUMAN PAPILLOMAVIRUS VACCINE [Suspect]
     Active Substance: HUMAN PAPILLOMAVIRUS VACCINE
     Dosage: SECOND DOSE
     Dates: start: 202208, end: 202208
  4. HUMAN PAPILLOMAVIRUS VACCINE [Suspect]
     Active Substance: HUMAN PAPILLOMAVIRUS VACCINE
     Dosage: FIRST DOSE

REACTIONS (11)
  - Genital haemorrhage [Unknown]
  - Menstruation delayed [Not Recovered/Not Resolved]
  - Intermenstrual bleeding [Unknown]
  - Vaccination site pain [Recovered/Resolved]
  - Chest pain [Unknown]
  - Malaise [Unknown]
  - Nasopharyngitis [Unknown]
  - Vaccination site pain [Unknown]
  - Cough [Recovered/Resolved]
  - COVID-19 [Unknown]
  - Rash [Recovered/Resolved]

NARRATIVE: CASE EVENT DATE: 20220101
